FAERS Safety Report 5473354-5 (Version None)
Quarter: 2007Q3

REPORT INFORMATION
  Report Type: 
  Country: None (occurrence: None)
  Receive Date: 20070824
  Receipt Date: 20070622
  Transmission Date: 20080115
  Serious: Yes (Disabling)
  Sender: FDA-Public Use
  Company Number: WAES 0704USA04397

PATIENT
  Age: 59 Year
  Sex: Male
  Weight: 90.7194 kg

DRUGS (4)
  1. VYTORIN [Suspect]
     Indication: HYPERLIPIDAEMIA
     Dosage: 10-20 MG DAILY; PO
     Route: 048
     Dates: start: 20061201, end: 20070401
  2. BENICAR [Concomitant]
  3. DETROL [Concomitant]
  4. ASPIRIN [Concomitant]

REACTIONS (1)
  - MYALGIA [None]
